FAERS Safety Report 4336301-5 (Version None)
Quarter: 2004Q2

REPORT INFORMATION
  Report Type: 
  Country: None (occurrence: None)
  Receive Date: 20040409
  Receipt Date: 20040409
  Transmission Date: 20050107
  Serious: Yes (Life-Threatening, Hospitalization)
  Sender: FDA-Public Use
  Company Number: None

PATIENT
  Sex: Female
  Weight: 55.3388 kg

DRUGS (3)
  1. PAXIL CR [Suspect]
     Indication: ANXIETY
     Dosage: 1 TABLET DAILY
     Dates: start: 20031013, end: 20031026
  2. KLONOPIN WAFER [Concomitant]
  3. MULTI-VITAMIN [Concomitant]

REACTIONS (10)
  - ACTIVITIES OF DAILY LIVING IMPAIRED [None]
  - AGGRESSION [None]
  - ANOREXIA [None]
  - ANXIETY [None]
  - CHEST PAIN [None]
  - INSOMNIA [None]
  - INTENTIONAL OVERDOSE [None]
  - MEMORY IMPAIRMENT [None]
  - SUICIDAL IDEATION [None]
  - SUICIDE ATTEMPT [None]
